FAERS Safety Report 9015720 (Version 3)
Quarter: 2013Q3

REPORT INFORMATION
  Report Type: Spontaneous
  Country: DK (occurrence: None)
  Receive Date: 20130103
  Receipt Date: 20130814
  Transmission Date: 20140515
  Serious: Yes (Life-Threatening, Hospitalization, Disabling, Other)
  Sender: FDA-Public Use
  Company Number: DSA_61647_2012

PATIENT
  Age: 49 Year
  Sex: Male
  Weight: 92 kg

DRUGS (5)
  1. ELIDEL [Suspect]
     Indication: SKIN DISORDER
     Dosage: (DF)
     Dates: start: 2005
  2. PREDNISOLONE (PREDNISOLONE) [Suspect]
     Indication: PRODUCT USED FOR UNKNOWN INDICATION
     Dosage: (DF)
     Dates: start: 200605, end: 200606
  3. CYMBALTA 60MG (DULOXETINE HYDROCHLORIDE) (60 MILLIGRAM, CAPSULE) (DULOXETINE HYDROCHLORIDE) [Concomitant]
  4. TOPIRAMATE (TOPIRAMATE ) (FILM-COATED TABLET) (TOPIRAMATE) [Concomitant]
  5. CORODIL (ENLAPRIL MALEATE) (5 MILLIGRAM, TABLET) (ENALAPRIL MALEATE) [Concomitant]

REACTIONS (4)
  - Epilepsy [None]
  - Sudden onset of sleep [None]
  - Impaired work ability [None]
  - Somnolence [None]
